FAERS Safety Report 8068590-8 (Version None)
Quarter: 2012Q1

REPORT INFORMATION
  Report Type: 
  Country: None (occurrence: None)
  Receive Date: 20120124
  Receipt Date: 20111108
  Transmission Date: 20120608
  Serious: No
  Sender: FDA-Public Use
  Company Number: US-AMGEN-USASP2011059123

PATIENT
  Sex: Female

DRUGS (7)
  1. CELEBREX [Concomitant]
  2. LANSOPRAZOLE [Concomitant]
  3. PROLIA [Suspect]
     Indication: OSTEOPOROSIS POSTMENOPAUSAL
     Dosage: UNK UNK, Q6MO
  4. VITAMIN B-12 [Concomitant]
     Dosage: UNK
  5. RYTHMOL [Concomitant]
  6. LYRICA [Concomitant]
  7. BECONASE [Concomitant]

REACTIONS (4)
  - ARTHRALGIA [None]
  - CATARACT [None]
  - MOBILITY DECREASED [None]
  - PAIN IN EXTREMITY [None]
